FAERS Safety Report 24631883 (Version 3)
Quarter: 2025Q3

REPORT INFORMATION
  Report Type: Report from Study
  Country: US (occurrence: US)
  Receive Date: 20241118
  Receipt Date: 20250802
  Transmission Date: 20251021
  Serious: Yes (Other)
  Sender: ALEXION PHARMACEUTICALS
  Company Number: US-AstraZeneca-CH-00748298A

PATIENT
  Sex: Female

DRUGS (1)
  1. BUDESONIDE\FORMOTEROL\GLYCOPYRRONIUM [Suspect]
     Active Substance: BUDESONIDE\FORMOTEROL\GLYCOPYRRONIUM
     Indication: Chronic obstructive pulmonary disease

REACTIONS (7)
  - Fall [Unknown]
  - Tibia fracture [Unknown]
  - Meniscus injury [Unknown]
  - Ligament rupture [Unknown]
  - Patella fracture [Unknown]
  - Decreased activity [Unknown]
  - Insurance issue [Unknown]
